FAERS Safety Report 6853523-X (Version None)
Quarter: 2010Q3

REPORT INFORMATION
  Report Type: 
  Country: None (occurrence: None)
  Receive Date: 20100717
  Receipt Date: 20071207
  Transmission Date: 20110219
  Serious: No
  Sender: FDA-Public Use
  Company Number: US-PFIZER INC-2007105647

PATIENT
  Sex: Male
  Weight: 140.9 kg

DRUGS (4)
  1. CHANTIX [Suspect]
     Indication: SMOKING CESSATION THERAPY
     Route: 048
     Dates: start: 20070601, end: 20070701
  2. LASIX [Concomitant]
     Route: 048
  3. POTASSIUM CHLORIDE [Concomitant]
     Route: 048
  4. MONTELUKAST SODIUM [Concomitant]
     Route: 048

REACTIONS (6)
  - ABNORMAL DREAMS [None]
  - APATHY [None]
  - LOSS OF LIBIDO [None]
  - SLEEP APNOEA SYNDROME [None]
  - SLEEP DISORDER [None]
  - WEIGHT INCREASED [None]
